FAERS Safety Report 20160493 (Version 1)
Quarter: 2021Q4

REPORT INFORMATION
  Report Type: Report from Study
  Country: US (occurrence: US)
  Receive Date: 20211208
  Receipt Date: 20211208
  Transmission Date: 20220303
  Serious: Yes (Other)
  Sender: FDA-Public Use
  Company Number: US-ABBVIE-21K-163-4184139-00

PATIENT
  Sex: Female

DRUGS (3)
  1. RINVOQ [Suspect]
     Active Substance: UPADACITINIB
     Indication: Rheumatoid arthritis
     Route: 048
     Dates: start: 20210315
  2. RINVOQ [Suspect]
     Active Substance: UPADACITINIB
     Route: 048
  3. COLESEVELAM [Concomitant]
     Active Substance: COLESEVELAM
     Indication: Product used for unknown indication

REACTIONS (11)
  - Anaphylactic reaction [Unknown]
  - Bedridden [Unknown]
  - Urticaria [Unknown]
  - Furuncle [Unknown]
  - Alopecia [Unknown]
  - Pruritus [Unknown]
  - Scab [Unknown]
  - Wound secretion [Unknown]
  - Furuncle [Unknown]
  - Skin exfoliation [Unknown]
  - Urticaria [Unknown]

NARRATIVE: CASE EVENT DATE: 20210101
